FAERS Safety Report 14456422 (Version 3)
Quarter: 2018Q3

REPORT INFORMATION
  Report Type: Spontaneous
  Country: US (occurrence: US)
  Receive Date: 20180130
  Receipt Date: 20180817
  Transmission Date: 20181010
  Serious: Yes (Disabling, Other)
  Sender: FDA-Public Use
  Company Number: US-ASTRAZENECA-2018SE10898

PATIENT
  Age: 46 Year
  Sex: Female
  Weight: 77.1 kg

DRUGS (102)
  1. PRILOSEC [Suspect]
     Active Substance: OMEPRAZOLE MAGNESIUM
     Indication: GASTROOESOPHAGEAL REFLUX DISEASE
     Route: 048
     Dates: start: 19980710
  2. PRILOSEC [Suspect]
     Active Substance: OMEPRAZOLE MAGNESIUM
     Indication: GASTROOESOPHAGEAL REFLUX DISEASE
     Route: 048
     Dates: start: 1998, end: 2001
  3. PRILOSEC [Suspect]
     Active Substance: OMEPRAZOLE MAGNESIUM
     Indication: GASTROOESOPHAGEAL REFLUX DISEASE
     Route: 048
     Dates: start: 1998, end: 2001
  4. SEROQUEL [Concomitant]
     Active Substance: QUETIAPINE FUMARATE
     Indication: BIPOLAR DISORDER
     Route: 065
  5. GEN?RANITIDINE [Concomitant]
     Route: 065
     Dates: start: 2008, end: 2016
  6. ZANTAC [Concomitant]
     Active Substance: RANITIDINE HYDROCHLORIDE
     Dosage: GENERIC
     Route: 048
     Dates: start: 20010119
  7. ALPRAZOLAM. [Concomitant]
     Active Substance: ALPRAZOLAM
     Route: 048
     Dates: start: 19980327
  8. ALPRAZOLAM. [Concomitant]
     Active Substance: ALPRAZOLAM
     Route: 048
     Dates: start: 20140512
  9. L?THYROXINE [Concomitant]
     Active Substance: LEVOTHYROXINE
     Route: 048
     Dates: start: 19990820
  10. TAMSULOSIN [Concomitant]
     Active Substance: TAMSULOSIN
     Route: 048
     Dates: start: 20150930
  11. PROZAC [Concomitant]
     Active Substance: FLUOXETINE HYDROCHLORIDE
     Indication: DEPRESSION
     Route: 048
     Dates: start: 20001218
  12. PROZAC [Concomitant]
     Active Substance: FLUOXETINE HYDROCHLORIDE
     Indication: BORDERLINE PERSONALITY DISORDER
     Route: 048
     Dates: start: 20001218
  13. CLONAZEPAM. [Concomitant]
     Active Substance: CLONAZEPAM
     Indication: BORDERLINE PERSONALITY DISORDER
     Route: 048
     Dates: start: 19990503
  14. TRAMADOL. [Concomitant]
     Active Substance: TRAMADOL
     Route: 065
  15. KETOROLAC [Concomitant]
     Active Substance: KETOROLAC\KETOROLAC TROMETHAMINE
     Route: 048
     Dates: start: 20000902
  16. ULTRAM [Concomitant]
     Active Substance: TRAMADOL HYDROCHLORIDE
     Route: 048
     Dates: start: 20010713
  17. DICYCLOMINE [Concomitant]
     Active Substance: DICYCLOMINE HYDROCHLORIDE
     Route: 048
     Dates: start: 20051217
  18. FLUOXETINE [Concomitant]
     Active Substance: FLUOXETINE HYDROCHLORIDE
     Route: 048
     Dates: start: 20110818
  19. CHANTIX [Concomitant]
     Active Substance: VARENICLINE TARTRATE
     Dosage: 0.5?1 MG
     Route: 048
     Dates: start: 20150414
  20. PRILOSEC [Suspect]
     Active Substance: OMEPRAZOLE MAGNESIUM
     Indication: GASTROOESOPHAGEAL REFLUX DISEASE
     Route: 048
     Dates: start: 19980710
  21. PROZAC [Concomitant]
     Active Substance: FLUOXETINE HYDROCHLORIDE
     Indication: BIPOLAR DISORDER
     Route: 048
     Dates: start: 20001218
  22. CLONAZEPAM. [Concomitant]
     Active Substance: CLONAZEPAM
     Indication: BIPOLAR DISORDER
     Route: 048
     Dates: start: 19990503
  23. THIAMINE [Concomitant]
     Active Substance: THIAMINE
     Indication: HYPOVITAMINOSIS
     Route: 065
  24. ACETAMINOPHEN. [Concomitant]
     Active Substance: ACETAMINOPHEN
     Indication: PAIN
     Route: 065
  25. MOTRIN [Concomitant]
     Active Substance: IBUPROFEN
     Indication: PAIN
     Route: 065
  26. MAGNESIUM HYDROXIDE. [Concomitant]
     Active Substance: MAGNESIUM HYDROXIDE
     Route: 065
     Dates: start: 2012, end: 2015
  27. INDOMETHACIN. [Concomitant]
     Active Substance: INDOMETHACIN
     Route: 048
     Dates: start: 19990908
  28. CYCLOBENZAPRINE. [Concomitant]
     Active Substance: CYCLOBENZAPRINE
     Route: 048
     Dates: start: 20000106
  29. DOXEPIN [Concomitant]
     Active Substance: DOXEPIN
     Route: 048
     Dates: start: 20000106
  30. AMOXYCILLIN [Concomitant]
     Active Substance: AMOXICILLIN
     Route: 048
     Dates: start: 20070711
  31. PREDNISONE. [Concomitant]
     Active Substance: PREDNISONE
     Route: 048
     Dates: start: 20070711
  32. CITALOPRAM [Concomitant]
     Active Substance: CITALOPRAM HYDROBROMIDE
     Route: 048
     Dates: start: 20100729
  33. ABILIFY [Concomitant]
     Active Substance: ARIPIPRAZOLE
     Route: 048
     Dates: start: 20100916
  34. HYDROCODONE/ACETAMINOPHEN [Concomitant]
     Active Substance: ACETAMINOPHEN\HYDROCODONE
     Dosage: 10?325 MG EVERY FOUR HOURS
     Route: 048
  35. PRAZOSIN. [Concomitant]
     Active Substance: PRAZOSIN
     Route: 048
  36. HYDROXYZINE [Concomitant]
     Active Substance: HYDROXYZINE HYDROCHLORIDE
     Route: 048
     Dates: start: 20000902
  37. CIPROFLOXACIN. [Concomitant]
     Active Substance: CIPROFLOXACIN
     Route: 048
     Dates: start: 20090228
  38. AZITHROMYCIN ANHYDROUS. [Concomitant]
     Active Substance: AZITHROMYCIN ANHYDROUS
     Route: 048
     Dates: start: 20101101
  39. LOSARTAN. [Concomitant]
     Active Substance: LOSARTAN
     Indication: BLOOD PRESSURE MEASUREMENT
     Route: 048
     Dates: start: 20150714
  40. CHANTIX [Concomitant]
     Active Substance: VARENICLINE TARTRATE
     Route: 048
     Dates: start: 20150513
  41. PANTOPRAZOLE [Suspect]
     Active Substance: PANTOPRAZOLE
     Indication: GASTROOESOPHAGEAL REFLUX DISEASE
     Route: 048
     Dates: start: 20130120
  42. PANTOPRAZOLE [Suspect]
     Active Substance: PANTOPRAZOLE
     Indication: GASTROOESOPHAGEAL REFLUX DISEASE
     Route: 048
     Dates: start: 20160425
  43. LITHIUM. [Concomitant]
     Active Substance: LITHIUM
     Indication: INTENTIONAL SELF-INJURY
     Route: 065
  44. PROZAC [Concomitant]
     Active Substance: FLUOXETINE HYDROCHLORIDE
     Indication: BIPOLAR DISORDER
     Dosage: 3 CAPSULE ONCE A DAY
     Route: 048
  45. PROZAC [Concomitant]
     Active Substance: FLUOXETINE HYDROCHLORIDE
     Indication: BORDERLINE PERSONALITY DISORDER
     Dosage: 3 CAPSULE ONCE A DAY
     Route: 048
  46. PROZAC [Concomitant]
     Active Substance: FLUOXETINE HYDROCHLORIDE
     Indication: INTENTIONAL SELF-INJURY
     Dosage: 3 CAPSULE ONCE A DAY
     Route: 048
  47. CLONAZEPAM. [Concomitant]
     Active Substance: CLONAZEPAM
     Indication: DEPRESSION
     Route: 048
  48. CLONAZEPAM. [Concomitant]
     Active Substance: CLONAZEPAM
     Indication: BORDERLINE PERSONALITY DISORDER
     Route: 048
  49. CLONAZEPAM. [Concomitant]
     Active Substance: CLONAZEPAM
     Indication: INTENTIONAL SELF-INJURY
     Route: 048
  50. SEROQUEL [Concomitant]
     Active Substance: QUETIAPINE FUMARATE
     Indication: DEPRESSION
     Route: 065
  51. FAMOTIDINE. [Concomitant]
     Active Substance: FAMOTIDINE
     Route: 065
  52. ARMOUR THYROID [Concomitant]
     Active Substance: THYROID, PORCINE
     Route: 048
  53. CHLORTHALIDONE. [Concomitant]
     Active Substance: CHLORTHALIDONE
     Route: 048
  54. ZANTAC [Concomitant]
     Active Substance: RANITIDINE HYDROCHLORIDE
     Route: 065
  55. IBUPROFEN. [Concomitant]
     Active Substance: IBUPROFEN
     Route: 065
  56. CALCIUM CARBONATE. [Concomitant]
     Active Substance: CALCIUM CARBONATE
     Route: 065
  57. PAXIL [Concomitant]
     Active Substance: PAROXETINE HYDROCHLORIDE
     Route: 048
     Dates: start: 19990621
  58. GUAIFENEX [Concomitant]
     Active Substance: GUAIFENESIN\PHENYLEPHRINE\PHENYLPROPANOLAMINE
     Route: 048
     Dates: start: 20001116
  59. KETOCONAZOLE. [Concomitant]
     Active Substance: KETOCONAZOLE
     Route: 062
     Dates: start: 20110722
  60. QUETIAPINE FUMARATE. [Concomitant]
     Active Substance: QUETIAPINE FUMARATE
     Route: 048
     Dates: start: 20120403
  61. MAGNESIUM OXIDE. [Concomitant]
     Active Substance: MAGNESIUM OXIDE
     Route: 048
     Dates: start: 20120508
  62. LITHIUM. [Concomitant]
     Active Substance: LITHIUM
     Indication: BORDERLINE PERSONALITY DISORDER
     Route: 065
  63. CLONAZEPAM. [Concomitant]
     Active Substance: CLONAZEPAM
     Indication: INTENTIONAL SELF-INJURY
     Route: 048
     Dates: start: 19990503
  64. SEROQUEL [Concomitant]
     Active Substance: QUETIAPINE FUMARATE
     Indication: INTENTIONAL SELF-INJURY
     Route: 065
  65. BENADRYL [Concomitant]
     Active Substance: DIPHENHYDRAMINE HYDROCHLORIDE
     Indication: EXTRAPYRAMIDAL DISORDER
     Route: 065
  66. CALCIUM CARBONATE. [Concomitant]
     Active Substance: CALCIUM CARBONATE
     Route: 065
  67. AMLODIPINE [Concomitant]
     Active Substance: AMLODIPINE BESYLATE
     Route: 048
     Dates: start: 20160712
  68. SULINDAC. [Concomitant]
     Active Substance: SULINDAC
     Route: 048
     Dates: start: 20000106
  69. VIOXX [Concomitant]
     Active Substance: ROFECOXIB
     Route: 048
     Dates: start: 20000607
  70. LORATADINE. [Concomitant]
     Active Substance: LORATADINE
     Route: 048
     Dates: start: 20100519
  71. TRAZODONE [Concomitant]
     Active Substance: TRAZODONE HYDROCHLORIDE
     Route: 048
     Dates: start: 20100916
  72. POTASSIUM CHLORIDE. [Concomitant]
     Active Substance: POTASSIUM CHLORIDE
     Route: 048
     Dates: start: 20120225
  73. PANTOPRAZOLE [Suspect]
     Active Substance: PANTOPRAZOLE
     Indication: GASTROOESOPHAGEAL REFLUX DISEASE
     Route: 048
     Dates: start: 20130120
  74. PANTOPRAZOLE [Suspect]
     Active Substance: PANTOPRAZOLE
     Indication: GASTROOESOPHAGEAL REFLUX DISEASE
     Route: 065
     Dates: start: 2013, end: 2016
  75. PANTOPRAZOLE [Suspect]
     Active Substance: PANTOPRAZOLE
     Indication: GASTROOESOPHAGEAL REFLUX DISEASE
     Route: 065
     Dates: start: 2013, end: 2016
  76. LITHIUM. [Concomitant]
     Active Substance: LITHIUM
     Indication: BIPOLAR DISORDER
     Route: 065
  77. PROZAC [Concomitant]
     Active Substance: FLUOXETINE HYDROCHLORIDE
     Indication: DEPRESSION
     Dosage: 3 CAPSULE ONCE A DAY
     Route: 048
  78. CLONAZEPAM. [Concomitant]
     Active Substance: CLONAZEPAM
     Indication: DEPRESSION
     Route: 048
     Dates: start: 19990503
  79. SEROQUEL [Concomitant]
     Active Substance: QUETIAPINE FUMARATE
     Indication: BORDERLINE PERSONALITY DISORDER
     Route: 065
  80. GABAPENTIN. [Concomitant]
     Active Substance: GABAPENTIN
     Route: 048
  81. LISINOPRIL. [Concomitant]
     Active Substance: LISINOPRIL
     Route: 048
  82. PROAIR HFA [Concomitant]
     Active Substance: ALBUTEROL SULFATE
     Dosage: 90 MCG/ACTUATION.FOUR TIMES A DAY.
     Route: 055
  83. ZOFRAN [Concomitant]
     Active Substance: ONDANSETRON HYDROCHLORIDE
     Route: 048
  84. NAPROXEN. [Concomitant]
     Active Substance: NAPROXEN
     Route: 065
  85. HYDROCHLOROT [Concomitant]
     Active Substance: HYDROCHLOROTHIAZIDE
     Dosage: ONE OR TWO TABLET
     Route: 048
     Dates: start: 19991206
  86. TOPIRAMATE. [Concomitant]
     Active Substance: TOPIRAMATE
     Route: 048
     Dates: start: 20100916
  87. LAMOTRIGINE. [Concomitant]
     Active Substance: LAMOTRIGINE
     Route: 048
     Dates: start: 20110818
  88. LITHIUM CARBONATE. [Concomitant]
     Active Substance: LITHIUM CARBONATE
     Route: 048
     Dates: start: 20120225
  89. CYMBALTA [Concomitant]
     Active Substance: DULOXETINE HYDROCHLORIDE
     Route: 048
     Dates: start: 20120718
  90. DIAZEPAM. [Concomitant]
     Active Substance: DIAZEPAM
     Dosage: ONE TABLET BEFORE MRI
     Route: 048
     Dates: start: 20150223
  91. LIDOCAINE. [Concomitant]
     Active Substance: LIDOCAINE
     Dosage: ONE TEASPOONFUL
     Route: 048
     Dates: start: 20150929
  92. NYSTATIN. [Concomitant]
     Active Substance: NYSTATIN
     Route: 048
     Dates: start: 20151010
  93. PANTOPRAZOLE [Suspect]
     Active Substance: PANTOPRAZOLE
     Indication: GASTROOESOPHAGEAL REFLUX DISEASE
     Route: 048
     Dates: start: 20160425
  94. LITHIUM. [Concomitant]
     Active Substance: LITHIUM
     Indication: DEPRESSION
     Route: 065
  95. PROZAC [Concomitant]
     Active Substance: FLUOXETINE HYDROCHLORIDE
     Indication: INTENTIONAL SELF-INJURY
     Route: 048
     Dates: start: 20001218
  96. CLONAZEPAM. [Concomitant]
     Active Substance: CLONAZEPAM
     Indication: BIPOLAR DISORDER
     Route: 048
  97. ATORVASTATIN [Concomitant]
     Active Substance: ATORVASTATIN
     Dosage: 1/2 TABLET
     Route: 048
  98. DIPHEN/ATROP [Concomitant]
     Active Substance: ATROPINE SULFATE\DIPHENOXYLATE
     Indication: DIARRHOEA
     Route: 048
     Dates: start: 20000105
  99. NITROFURANTOIN. [Concomitant]
     Active Substance: NITROFURANTOIN
     Route: 048
     Dates: start: 20111219
  100. ONDANSETRON [Concomitant]
     Active Substance: ONDANSETRON
     Route: 048
     Dates: start: 20130217
  101. MUPIROCIN. [Concomitant]
     Active Substance: MUPIROCIN
     Route: 062
     Dates: start: 20140131
  102. LOSARTAN. [Concomitant]
     Active Substance: LOSARTAN
     Indication: BLOOD PRESSURE MEASUREMENT
     Route: 048
     Dates: start: 20140325

REACTIONS (2)
  - Renal injury [Unknown]
  - Chronic kidney disease [Not Recovered/Not Resolved]

NARRATIVE: CASE EVENT DATE: 2014
